FAERS Safety Report 10131705 (Version 1)
Quarter: 2014Q2

REPORT INFORMATION
  Report Type: Spontaneous
  Country: CN (occurrence: CN)
  Receive Date: 20140428
  Receipt Date: 20140428
  Transmission Date: 20141212
  Serious: Yes (Hospitalization)
  Sender: FDA-Public Use
  Company Number: CN-PFIZER INC-2014112895

PATIENT
  Age: 2 Year
  Sex: Female
  Weight: 14 kg

DRUGS (2)
  1. CEFOBID [Suspect]
     Indication: INFECTION PROPHYLAXIS
     Dosage: 0.5 G, 1X/DAY
     Route: 040
     Dates: start: 20120618, end: 20120619
  2. CEFOBID [Suspect]
     Dosage: UNK
     Route: 041
     Dates: start: 20120618, end: 20120618

REACTIONS (1)
  - Haematuria [Recovered/Resolved]
